FAERS Safety Report 8604333-4 (Version None)
Quarter: 2012Q3

REPORT INFORMATION
  Report Type: 
  Country: None (occurrence: None)
  Receive Date: 20120820
  Receipt Date: 20120809
  Transmission Date: 20120928
  Serious: Yes (Other)
  Sender: FDA-Public Use
  Company Number: CA-JNJFOC-20120805016

PATIENT
  Sex: Female
  Weight: 51.6 kg

DRUGS (9)
  1. PREMARIN [Concomitant]
     Route: 065
  2. HYDROCHLOROTHIAZIDE [Concomitant]
     Route: 065
  3. REMICADE [Suspect]
     Indication: CROHN'S DISEASE
     Route: 042
     Dates: start: 20090617
  4. IMURAN [Concomitant]
     Route: 065
  5. DILAUDID [Concomitant]
     Route: 065
  6. ATENOLOL [Concomitant]
     Route: 065
  7. ASACOL [Concomitant]
     Route: 065
  8. ACEBUTOLOL [Concomitant]
     Route: 065
  9. TRAZODONE HYDROCHLORIDE [Concomitant]
     Route: 065

REACTIONS (1)
  - SCAR [None]
